FAERS Safety Report 18081126 (Version 6)
Quarter: 2020Q3

REPORT INFORMATION
  Report Type: Spontaneous
  Country: CL (occurrence: CL)
  Receive Date: 20200728
  Receipt Date: 20200902
  Transmission Date: 20201103
  Serious: No
  Sender: FDA-Public Use
  Company Number: CL-PFIZER INC-2020281883

PATIENT
  Age: 60 Year
  Sex: Female

DRUGS (1)
  1. ENBREL [Suspect]
     Active Substance: ETANERCEPT
     Dosage: UNK

REACTIONS (5)
  - Asthenia [Unknown]
  - Product dose omission issue [Unknown]
  - Device malfunction [Unknown]
  - Pruritus [Unknown]
  - Arthritis [Unknown]

NARRATIVE: CASE EVENT DATE: 20200720
